FAERS Safety Report 5947815-6 (Version None)
Quarter: 2008Q4

REPORT INFORMATION
  Report Type: 
  Country: None (occurrence: None)
  Receive Date: 20081107
  Receipt Date: 20081021
  Transmission Date: 20090506
  Serious: Yes (Other)
  Sender: FDA-Public Use
  Company Number: 20463

PATIENT
  Age: 20 Year
  Sex: Female
  Weight: 55.8 kg

DRUGS (4)
  1. METHOTREXATE [Suspect]
     Indication: ECTOPIC PREGNANCY
     Dosage: 75 MG FREQ IM
     Route: 030
     Dates: start: 20080915, end: 20080915
  2. CODEINE SUL TAB [Concomitant]
  3. DICLOFENAC SODIUM [Concomitant]
  4. PARACETAMOL [Concomitant]

REACTIONS (3)
  - DRUG EXPOSURE DURING PREGNANCY [None]
  - EYE PAIN [None]
  - SCLERAL DISCOLOURATION [None]
